FAERS Safety Report 8258064-3 (Version None)
Quarter: 2012Q2

REPORT INFORMATION
  Report Type: 
  Country: None (occurrence: None)
  Receive Date: 20120404
  Receipt Date: 20120329
  Transmission Date: 20120825
  Serious: Yes (Death, Other)
  Sender: FDA-Public Use
  Company Number: KW-JNJFOC-20120206771

PATIENT
  Age: 82 Year
  Sex: Male

DRUGS (5)
  1. ZYTIGA [Suspect]
     Indication: PROSTATE CANCER METASTATIC
     Route: 048
  2. ISORDIL [Concomitant]
     Route: 065
  3. ZOCOR [Suspect]
     Indication: HYPERLIPIDAEMIA
     Route: 065
  4. ANTIDEPRESSANT [Concomitant]
     Indication: DEPRESSION
     Route: 065
  5. NORVASC [Concomitant]
     Indication: HYPERTENSION
     Route: 065

REACTIONS (2)
  - DEATH [None]
  - BLOOD CREATINE PHOSPHOKINASE INCREASED [None]
